FAERS Safety Report 8191864-7 (Version None)
Quarter: 2012Q1

REPORT INFORMATION
  Report Type: 
  Country: None (occurrence: None)
  Receive Date: 20120307
  Receipt Date: 20120229
  Transmission Date: 20120608
  Serious: Yes (Other)
  Sender: FDA-Public Use
  Company Number: PHHY2011JP111320

PATIENT
  Age: 59 Year
  Sex: Female

DRUGS (5)
  1. BORTEZOMIB [Concomitant]
     Dosage: UNK UKN, UNK
     Route: 065
     Dates: start: 20090116
  2. DEXAMETHASONE [Concomitant]
     Dosage: UNK UKN, UNK
     Route: 065
     Dates: start: 20090116
  3. VINCRISTINE [Concomitant]
     Dosage: UNK UKN, UNK
     Route: 065
     Dates: start: 20090116
  4. DOXORUBICIN HCL [Concomitant]
     Dosage: UNK UKN, UNK
     Route: 065
     Dates: start: 20090116
  5. ZOMETA [Suspect]
     Indication: BONE LESION
     Dosage: UNK UKN, UNK
     Route: 041
     Dates: start: 20081101

REACTIONS (9)
  - BONE PAIN [None]
  - ERYTHEMA [None]
  - BONE LESION [None]
  - GINGIVAL INFECTION [None]
  - GINGIVAL SWELLING [None]
  - TOOTH ABSCESS [None]
  - SWELLING [None]
  - EXPOSED BONE IN JAW [None]
  - OSTEONECROSIS OF JAW [None]
